FAERS Safety Report 6784535-2 (Version None)
Quarter: 2010Q2

REPORT INFORMATION
  Report Type: 
  Country: None (occurrence: None)
  Receive Date: 20100622
  Receipt Date: 20100614
  Transmission Date: 20101027
  Serious: Yes (Hospitalization)
  Sender: FDA-Public Use
  Company Number: JP-BRISTOL-MYERS SQUIBB COMPANY-15156086

PATIENT
  Age: 64 Year
  Sex: Male
  Weight: 68 kg

DRUGS (6)
  1. ERBITUX [Suspect]
     Indication: RECTAL CANCER
     Dosage: RECENTINFUSION - 19DEC08;INTERRUPTED AND RESUMED ON 21NOV08(250MG/M2)
     Route: 042
     Dates: start: 20081111, end: 20081111
  2. IRINOTECAN [Suspect]
     Indication: RECTAL CANCER
     Dosage: MOST RECENT INFUSION ON11NOV08.ON 28NOV08 ALSO TAKEN AS CONMED WITH ERBITUX
     Route: 042
     Dates: start: 20081111, end: 20081212
  3. POLARAMINE [Concomitant]
     Indication: PREMEDICATION
     Route: 042
     Dates: start: 20081111, end: 20081219
  4. DECADRON [Concomitant]
     Indication: PREMEDICATION
     Route: 042
     Dates: start: 20081111, end: 20081219
  5. AMARYL [Concomitant]
     Indication: DIABETES MELLITUS
     Route: 048
  6. NORVASC [Concomitant]
     Indication: HYPERTENSION
     Route: 048

REACTIONS (1)
  - C-REACTIVE PROTEIN INCREASED [None]
